FAERS Safety Report 13813517 (Version 1)
Quarter: 2017Q3

REPORT INFORMATION
  Report Type: Report from Study
  Country: None (occurrence: RO)
  Receive Date: 20170731
  Receipt Date: 20170731
  Transmission Date: 20171127
  Serious: Yes (Hospitalization)
  Sender: FDA-Public Use
  Company Number: RO-ABBVIE-17K-135-2049882-00

PATIENT
  Age: 71 Year
  Sex: Female
  Weight: 73 kg

DRUGS (5)
  1. EGILOK [Concomitant]
     Active Substance: METOPROLOL TARTRATE
     Indication: MULTIMORBIDITY
  2. HUMIRA [Suspect]
     Active Substance: ADALIMUMAB
     Indication: RHEUMATOID ARTHRITIS
     Route: 058
     Dates: start: 20120701
  3. MONOPRIL [Concomitant]
     Active Substance: FOSINOPRIL SODIUM
     Indication: MULTIMORBIDITY
  4. ASPACARDIN [Concomitant]
     Indication: MULTIMORBIDITY
  5. LEFLUNOMID [Concomitant]
     Active Substance: LEFLUNOMIDE
     Indication: PRODUCT USED FOR UNKNOWN INDICATION

REACTIONS (8)
  - Rheumatoid arthritis [Recovering/Resolving]
  - Pain in extremity [Recovering/Resolving]
  - Radiculopathy [Recovering/Resolving]
  - Bicytopenia [Recovering/Resolving]
  - Normochromic normocytic anaemia [Recovering/Resolving]
  - Leukopenia [Recovering/Resolving]
  - Hypercholesterolaemia [Recovering/Resolving]
  - Spinal pain [Recovering/Resolving]

NARRATIVE: CASE EVENT DATE: 20170726
